FAERS Safety Report 8462327-6 (Version None)
Quarter: 2012Q2

REPORT INFORMATION
  Report Type: 
  Country: None (occurrence: None)
  Receive Date: 20120625
  Receipt Date: 20120613
  Transmission Date: 20120825
  Serious: Yes (Other)
  Sender: FDA-Public Use
  Company Number: BR-PFIZER INC-2012147347

PATIENT
  Age: 59 Year
  Sex: Male
  Weight: 73 kg

DRUGS (7)
  1. PANTOPRAZOLE [Suspect]
     Indication: HIATUS HERNIA
     Dosage: 40 MG, ONE TABLET DAILY
     Route: 048
     Dates: start: 20120409, end: 20120411
  2. PANTOPRAZOLE [Suspect]
     Indication: GASTRITIS
  3. PANTOPRAZOLE [Suspect]
     Indication: GASTROOESOPHAGEAL REFLUX DISEASE
  4. CLONAZEPAM [Concomitant]
     Indication: DEPRESSION
     Dosage: 1 DF, AS REQUIRED
     Route: 048
     Dates: start: 20111201
  5. PANTOPRAZOLE [Suspect]
     Indication: ABDOMINAL PAIN UPPER
  6. LOSARTAN [Concomitant]
     Indication: HYPERTENSION
     Dosage: 1 DOSAGE FORMS,
     Route: 048
     Dates: start: 20100101
  7. SIMVASTATIN [Concomitant]
     Indication: BLOOD CHOLESTEROL INCREASED
     Dosage: 1 DOSAGE FORMS
     Route: 048
     Dates: start: 20100101

REACTIONS (7)
  - BONE PAIN [None]
  - OEDEMA MOUTH [None]
  - LIP SWELLING [None]
  - DYSPNOEA [None]
  - PHARYNGEAL OEDEMA [None]
  - OEDEMA PERIPHERAL [None]
  - DYSPHAGIA [None]
